FAERS Safety Report 7217853-4 (Version None)
Quarter: 2011Q1

REPORT INFORMATION
  Report Type: 
  Country: None (occurrence: None)
  Receive Date: 20110110
  Receipt Date: 20070122
  Transmission Date: 20110831
  Serious: Yes (Disabling)
  Sender: FDA-Public Use
  Company Number: PHRM2007FR00615

PATIENT
  Age: 1 Hour
  Sex: Male
  Weight: 3.57 kg

DRUGS (3)
  1. LODOZ [Suspect]
     Dosage: MATERNAL DOSE : 1 DF, QD
     Route: 064
  2. COTAREG [Suspect]
     Dosage: MATERNAL DOSE : 1 DF, QD
     Route: 064
  3. LEVOTHYROX [Suspect]
     Dosage: MATERNAL DOSE : 150 UG, QD
     Route: 064

REACTIONS (21)
  - DELAYED FONTANELLE CLOSURE [None]
  - NEONATAL RESPIRATORY DISTRESS SYNDROME [None]
  - MALIGNANT HYPERTENSION [None]
  - KIDNEY MALFORMATION [None]
  - HYPOVENTILATION NEONATAL [None]
  - SPINE MALFORMATION [None]
  - RENAL FAILURE CHRONIC [None]
  - DRUG EXPOSURE DURING PREGNANCY [None]
  - POOR WEIGHT GAIN NEONATAL [None]
  - HYPERPARATHYROIDISM [None]
  - CARDIAC FAILURE [None]
  - PNEUMOTHORAX [None]
  - BLOOD CREATINE PHOSPHOKINASE INCREASED [None]
  - DYSMORPHISM [None]
  - BLOOD CREATININE INCREASED [None]
  - HYPOTONIA NEONATAL [None]
  - MULTIPLE CONGENITAL ABNORMALITIES [None]
  - AMYOTROPHY [None]
  - CRANIAL SUTURES WIDENING [None]
  - PULMONARY HYPOPLASIA [None]
  - NEONATAL RESPIRATORY ACIDOSIS [None]
